FAERS Safety Report 14214296 (Version 1)
Quarter: 2017Q4

REPORT INFORMATION
  Report Type: Spontaneous
  Country: US (occurrence: US)
  Receive Date: 20171122
  Receipt Date: 20171122
  Transmission Date: 20180321
  Serious: Yes (Other)
  Sender: FDA-Public Use
  Company Number: US-G+W LABS-GW2017US000300

PATIENT

DRUGS (2)
  1. AMINOPHYLLINE. [Suspect]
     Active Substance: AMINOPHYLLINE
     Dosage: 2.5 MG/KG, BID
     Route: 042
  2. AMINOPHYLLINE. [Suspect]
     Active Substance: AMINOPHYLLINE
     Indication: INFANTILE APNOEA
     Dosage: 8 MG/KG, SINGLE
     Route: 042

REACTIONS (1)
  - Hyponatraemia [Recovered/Resolved]
